FAERS Safety Report 12122406 (Version 3)
Quarter: 2016Q1

REPORT INFORMATION
  Report Type: Spontaneous
  Country: JP (occurrence: JP)
  Receive Date: 20160226
  Receipt Date: 20160322
  Transmission Date: 20160526
  Serious: Yes (Hospitalization)
  Sender: FDA-Public Use
  Company Number: JP-BRISTOL-MYERS SQUIBB COMPANY-BMS-2016-012451

PATIENT
  Age: 67 Year
  Sex: Female

DRUGS (3)
  1. SUNVEPRA [Suspect]
     Active Substance: ASUNAPREVIR
     Dosage: 50 UNK, UNK
     Route: 065
  2. DAKLINZA [Suspect]
     Active Substance: DACLATASVIR
     Indication: HEPATITIS C
     Dosage: 60 MG, QD
     Route: 065
     Dates: start: 201506
  3. SUNVEPRA [Suspect]
     Active Substance: ASUNAPREVIR
     Indication: HEPATITIS C
     Dosage: 100 MG, QD
     Route: 065
     Dates: start: 201506

REACTIONS (5)
  - Jaundice [Unknown]
  - Off label use [Unknown]
  - Underdose [Unknown]
  - Blood urea increased [Unknown]
  - Alanine aminotransferase increased [Recovering/Resolving]

NARRATIVE: CASE EVENT DATE: 20150724
